FAERS Safety Report 16652482 (Version 1)
Quarter: 2019Q3

REPORT INFORMATION
  Report Type: Spontaneous
  Country: FR (occurrence: FR)
  Receive Date: 20190731
  Receipt Date: 20190731
  Transmission Date: 20191004
  Serious: Yes (Hospitalization)
  Sender: FDA-Public Use
  Company Number: PHHY2019FR157877

PATIENT

DRUGS (2)
  1. ATROPINE SULFATE. [Suspect]
     Active Substance: ATROPINE SULFATE
     Indication: SALIVARY HYPERSECRETION
     Dosage: 1 GTT, UNK
     Route: 002
     Dates: start: 201809
  2. ATROPINE SULFATE. [Suspect]
     Active Substance: ATROPINE SULFATE
     Indication: MEDICATION ERROR
     Dosage: 1 GOUTTE/J DANS CHAQUE OEIL
     Route: 047
     Dates: start: 20190604

REACTIONS (3)
  - Constipation [Recovered/Resolved]
  - Urinary retention [Recovered/Resolved]
  - Atrial fibrillation [Recovered/Resolved]

NARRATIVE: CASE EVENT DATE: 201906
